FAERS Safety Report 10504506 (Version 2)
Quarter: 2014Q4

REPORT INFORMATION
  Report Type: Spontaneous
  Country: JP (occurrence: None)
  Receive Date: 20141006
  Receipt Date: 20141014
  Transmission Date: 20150528
  Serious: Yes (Other)
  Sender: FDA-Public Use
  Company Number: 2014JP000615

PATIENT
  Age: 66 Year
  Sex: Male

DRUGS (16)
  1. MAINTATE (BISOPROLOL FUMARATE) [Concomitant]
  2. URSO /00465701/ (URSODEOXYCHOLIC ACID) [Concomitant]
  3. SORBITOL (SORBITOL) [Concomitant]
  4. METLIGINE D (MIDODRINE HYDROCHLORIDE) [Concomitant]
  5. HERBAL EXTRACT NOS (HERBAL EXTRACT NOS) [Concomitant]
  6. MYSLEE (ZOLPIDEM TARTRATE) [Concomitant]
  7. DOPS (DROXIDOPA) [Concomitant]
  8. LAXOBERON (SODIUM PICOSULFATE) [Concomitant]
     Active Substance: SODIUM PICOSULFATE
  9. WARFARIN /00014803/ (WARFARIN POTASSIUM) [Concomitant]
  10. LIPITOR [Concomitant]
     Active Substance: ATORVASTATIN CALCIUM
  11. RISUMIC (AMEZINIUM METILSULFATE) [Concomitant]
  12. TAKEPRON (LANSOPRAZOLE) [Concomitant]
     Active Substance: LANSOPRAZOLE
  13. FERRIC CITRATE COORDINATION COMPLEX [Suspect]
     Active Substance: TETRAFERRIC TRICITRATE DECAHYDRATE
     Indication: HYPERPHOSPHATAEMIA
     Route: 048
     Dates: start: 20140620, end: 20140918
  14. FOSRENOL (LANTHANUM CARBONATE) [Concomitant]
  15. BAYASPIRIN (ACETYLSALICYLIC ACID) [Concomitant]
  16. OPALMON (LIMAPROST ALFADEX) [Concomitant]

REACTIONS (1)
  - Haemoglobin increased [None]

NARRATIVE: CASE EVENT DATE: 20140811
